FAERS Safety Report 16672925 (Version 1)
Quarter: 2019Q3

REPORT INFORMATION
  Report Type: Spontaneous
  Country: US (occurrence: US)
  Receive Date: 20190620
  Receipt Date: 20190620
  Transmission Date: 20191004
  Serious: No
  Sender: FDA-Public Use
  Company Number: None

PATIENT
  Age: 18 Year
  Sex: Female
  Weight: 61 kg

DRUGS (1)
  1. STIMATE [Suspect]
     Active Substance: DESMOPRESSIN ACETATE
     Indication: VON WILLEBRAND^S DISEASE
     Route: 045
     Dates: start: 20170921

REACTIONS (4)
  - Pregnancy [None]
  - Therapy cessation [None]
  - Foetal exposure during pregnancy [None]
  - Maternal exposure during pregnancy [None]

NARRATIVE: CASE EVENT DATE: 20190620
